FAERS Safety Report 9416324 (Version 1)
Quarter: 2013Q3

REPORT INFORMATION
  Report Type: Spontaneous
  Country: US (occurrence: US)
  Receive Date: 20130724
  Receipt Date: 20130724
  Transmission Date: 20140515
  Serious: Yes (Hospitalization)
  Sender: FDA-Public Use
  Company Number: US-BAYER-2013-088181

PATIENT
  Age: 35 Year
  Sex: Female
  Weight: 96.6 kg

DRUGS (3)
  1. YAZ [Suspect]
  2. GIANVI [Suspect]
  3. HYDROCODONE W/APAP [Concomitant]
     Indication: PAIN
     Dosage: 5MG/325MG, 1 ORALLY EVERY 6 HOURS AS NEEDED

REACTIONS (2)
  - Pulmonary embolism [None]
  - Deep vein thrombosis [None]
